FAERS Safety Report 19505360 (Version 1)
Quarter: 2021Q3

REPORT INFORMATION
  Report Type: Report from Study
  Country: ZA (occurrence: ZA)
  Receive Date: 20210708
  Receipt Date: 20210708
  Transmission Date: 20211014
  Serious: Yes (Death, Hospitalization, Other)
  Sender: FDA-Public Use
  Company Number: ZA-AMGEN-ZAFSL2021103631

PATIENT
  Age: 33 Year
  Sex: Male

DRUGS (4)
  1. ARANESP [Suspect]
     Active Substance: DARBEPOETIN ALFA
     Indication: END STAGE RENAL DISEASE
     Dosage: 80 MICROGRAM, Q2WK
     Route: 042
     Dates: start: 20160616, end: 20210703
  2. DYTOR [Concomitant]
     Active Substance: TORSEMIDE
     Dosage: 80 MILLIGRAM, QD
  3. AMLODIPINE [Concomitant]
     Active Substance: AMLODIPINE BESYLATE
     Dosage: 10 MILLIGRAM, QD
  4. CARLOC [Concomitant]
     Active Substance: CARVEDILOL
     Dosage: 25 MILLIGRAM, BID

REACTIONS (4)
  - Diarrhoea [Unknown]
  - Embolism [Fatal]
  - Back pain [Unknown]
  - SARS-CoV-2 test positive [Unknown]

NARRATIVE: CASE EVENT DATE: 2021
